FAERS Safety Report 6821567-X (Version None)
Quarter: 2010Q3

REPORT INFORMATION
  Report Type: 
  Country: None (occurrence: None)
  Receive Date: 20100707
  Receipt Date: 20090619
  Transmission Date: 20110219
  Serious: No
  Sender: FDA-Public Use
  Company Number: US-PFIZER INC-2009204545

PATIENT
  Sex: Female

DRUGS (2)
  1. ZOLOFT [Suspect]
  2. PROZAC [Suspect]

REACTIONS (2)
  - SLEEP DISORDER [None]
  - SOMNOLENCE [None]
